FAERS Safety Report 7094200-2 (Version None)
Quarter: 2010Q4

REPORT INFORMATION
  Report Type: 
  Country: None (occurrence: None)
  Receive Date: 20101110
  Receipt Date: 20101029
  Transmission Date: 20110411
  Serious: Yes (Other)
  Sender: FDA-Public Use
  Company Number: US-ELI_LILLY_AND_COMPANY-US201011001112

PATIENT
  Age: 40 Year
  Sex: Male

DRUGS (2)
  1. EFFIENT [Suspect]
     Indication: PROPHYLAXIS
     Dosage: 10 MG, UNKNOWN
     Route: 065
     Dates: start: 20100601
  2. ASPIRIN [Concomitant]
     Dosage: UNK, UNKNOWN
     Route: 065

REACTIONS (1)
  - CORONARY ARTERY EMBOLISM [None]
